FAERS Safety Report 21921237 (Version 1)
Quarter: 2023Q1

REPORT INFORMATION
  Report Type: Spontaneous
  Country: JP (occurrence: JP)
  Receive Date: 20230127
  Receipt Date: 20230127
  Transmission Date: 20230418
  Serious: Yes (Hospitalization)
  Sender: FDA-Public Use
  Company Number: JP-DSJP-DSJ-2023-103140

PATIENT
  Age: 88 Year
  Sex: Female

DRUGS (1)
  1. EDOXABAN TOSYLATE [Suspect]
     Active Substance: EDOXABAN TOSYLATE
     Indication: Atrial fibrillation
     Dosage: 30 MG/DAY
     Route: 065

REACTIONS (3)
  - Tumour of ampulla of Vater [Unknown]
  - Pancreatic cystadenoma [Unknown]
  - Post procedural haemorrhage [Recovered/Resolved]
